FAERS Safety Report 19257615 (Version 1)
Quarter: 2021Q2

REPORT INFORMATION
  Report Type: Spontaneous
  Country: US (occurrence: US)
  Receive Date: 20210513
  Receipt Date: 20210513
  Transmission Date: 20210717
  Serious: Yes (Hospitalization)
  Sender: FDA-Public Use
  Company Number: None

PATIENT
  Age: 14 Month
  Sex: Male

DRUGS (3)
  1. ZYRTEC [Concomitant]
     Active Substance: CETIRIZINE HYDROCHLORIDE
  2. VIGABATRIN. [Suspect]
     Active Substance: VIGABATRIN
     Indication: EPILEPSY
     Route: 048
     Dates: start: 20201027
  3. TOPIRAMATE, GABAPENTIN, CLONAZEPAM, FLONASE, CLARITIN, PEPCID AC [Concomitant]

REACTIONS (2)
  - Condition aggravated [None]
  - Seizure [None]

NARRATIVE: CASE EVENT DATE: 20210429
